FAERS Safety Report 19310247 (Version 1)
Quarter: 2021Q2

REPORT INFORMATION
  Report Type: Report from Study
  Country: US (occurrence: US)
  Receive Date: 20210526
  Receipt Date: 20210526
  Transmission Date: 20210717
  Serious: No
  Sender: FDA-Public Use
  Company Number: NVSC2021US110435

PATIENT
  Sex: Female

DRUGS (1)
  1. ENTRESTO [Suspect]
     Active Substance: SACUBITRIL\VALSARTAN
     Indication: PRODUCT USED FOR UNKNOWN INDICATION
     Dosage: UNK (49/51 MG, BID)
     Route: 048

REACTIONS (5)
  - Flatulence [Unknown]
  - Sluggishness [Unknown]
  - Weight decreased [Unknown]
  - Fatigue [Recovering/Resolving]
  - Psychomotor hyperactivity [Unknown]
